FAERS Safety Report 9091019 (Version 2)
Quarter: 2013Q2

REPORT INFORMATION
  Report Type: Spontaneous
  Country: US (occurrence: US)
  Receive Date: 20130201
  Receipt Date: 20130510
  Transmission Date: 20140414
  Serious: Yes (Hospitalization)
  Sender: FDA-Public Use
  Company Number: US-BAYER-2013-012239

PATIENT
  Age: 19 Year
  Sex: Female

DRUGS (5)
  1. YAZ [Suspect]
  2. CEFDINIR [Concomitant]
     Dosage: 300 MG, UNK
     Route: 048
  3. DOXYCYCLINE [Concomitant]
     Dosage: UNK
     Dates: start: 20060424, end: 20080305
  4. BENZACLIN [Concomitant]
     Dosage: UNK
     Dates: start: 20060424, end: 20080626
  5. RETIN-A MICRO [Concomitant]
     Dosage: UNK
     Dates: start: 20060424, end: 20080812

REACTIONS (1)
  - Deep vein thrombosis [None]
